FAERS Safety Report 21796378 (Version 1)
Quarter: 2022Q4

REPORT INFORMATION
  Report Type: Spontaneous
  Country: US (occurrence: US)
  Receive Date: 20221229
  Receipt Date: 20221229
  Transmission Date: 20230112
  Serious: Yes (Other)
  Sender: FDA-Public Use
  Company Number: US-BRISTOL-MYERS SQUIBB COMPANY-2022-160217

PATIENT
  Age: 83 Year
  Sex: Female
  Weight: 48.5 kg

DRUGS (1)
  1. REVLIMID [Suspect]
     Active Substance: LENALIDOMIDE
     Indication: Plasma cell myeloma
     Dosage: FREQUENCY- 3W, 1W OFF.
     Route: 048

REACTIONS (2)
  - Neuropathy peripheral [Unknown]
  - Gastric disorder [Unknown]
